FAERS Safety Report 13063690 (Version 3)
Quarter: 2020Q2

REPORT INFORMATION
  Report Type: Spontaneous
  Country: US (occurrence: US)
  Receive Date: 20161227
  Receipt Date: 20200609
  Transmission Date: 20200713
  Serious: No
  Sender: FDA-Public Use
  Company Number: US-PFIZER INC-2016585023

PATIENT
  Age: 69 Year
  Sex: Female

DRUGS (5)
  1. LYRICA [Suspect]
     Active Substance: PREGABALIN
     Indication: TRIGEMINAL NEURALGIA
  2. LYRICA [Suspect]
     Active Substance: PREGABALIN
     Indication: FACIAL PAIN
     Dosage: 225 MG, DAILY (2 Q AM AND 1 Q HS)
     Route: 048
     Dates: start: 20161208
  3. OMEGA 3 [FISH OIL;TOCOPHEROL] [Concomitant]
     Active Substance: FISH OIL\TOCOPHEROL
     Dosage: 690 MG, UNK
  4. BIOTIN [Concomitant]
     Active Substance: BIOTIN
     Dosage: 10 MG, UNK
  5. CALCIUM PLUS WITH MAGNESIUM + VITAMIN D [Concomitant]
     Dosage: [CALCIUM 600 MG PLUS MAGNESIUM 300 MG VIT D3 400 IU]

REACTIONS (3)
  - Peripheral swelling [Unknown]
  - Eye infection [Unknown]
  - Weight increased [Unknown]
